FAERS Safety Report 16824938 (Version 1)
Quarter: 2019Q3

REPORT INFORMATION
  Report Type: Spontaneous
  Country: NL (occurrence: NL)
  Receive Date: 20190919
  Receipt Date: 20190919
  Transmission Date: 20191005
  Serious: Yes (Other)
  Sender: FDA-Public Use
  Company Number: NL-AUROBINDO-AUR-APL-2019-061344

PATIENT
  Age: 14 Year
  Sex: Female
  Weight: 59 kg

DRUGS (3)
  1. LEVETIRACETAM FILM-COATED TABLET [Suspect]
     Active Substance: LEVETIRACETAM
     Indication: EPILEPSY
     Dosage: 1 DOSAGE FORM, 12 HOUR (AND AFTER WEEK INCREASED TO 2 TIMES 1 TABLET PER DAY)
     Route: 048
     Dates: start: 20190727, end: 20190730
  2. LAMOTRIGINE. [Concomitant]
     Active Substance: LAMOTRIGINE
     Indication: PRODUCT USED FOR UNKNOWN INDICATION
     Dosage: UNK
     Route: 065
  3. LEVETIRACETAM FILM-COATED TABLET [Suspect]
     Active Substance: LEVETIRACETAM
     Dosage: UNK {DF}, 12 HOUR (STARTED WITH HALF A TABLET TWICE A DAY)
     Route: 048
     Dates: start: 20190720, end: 20190727

REACTIONS (3)
  - Agitation [Recovered/Resolved]
  - Nausea [Recovered/Resolved]
  - Suicidal ideation [Not Recovered/Not Resolved]

NARRATIVE: CASE EVENT DATE: 20190721
